FAERS Safety Report 10244551 (Version 1)
Quarter: 2014Q1

REPORT INFORMATION
  Report Type: Spontaneous
  Country: US (occurrence: None)
  Receive Date: 20140306
  Receipt Date: 20140306
  Transmission Date: 20141002
  Serious: Yes (Other)
  Sender: FDA-Public Use
  Company Number: 163-21880-13030703

PATIENT
  Age: 62 Year
  Sex: Male
  Weight: 78 kg

DRUGS (13)
  1. REVLIMID [Suspect]
     Indication: PLASMA CELL MYELOMA
     Route: 048
     Dates: start: 20120430
  2. DEXAMETHASONE [Suspect]
     Indication: PLASMA CELL MYELOMA
     Dosage: UNKNOWN
  3. XARELTO [Concomitant]
  4. PREDNISONE [Concomitant]
  5. LEVOFLOXACIN [Concomitant]
  6. NEXIUM DR [Concomitant]
  7. ADVIL (IBUPROFEN) (TABLETS) [Concomitant]
  8. LEVOCETIRIZINE (TABLETS) [Concomitant]
  9. PAROXETINE ER (TALBETS) [Concomitant]
  10. HYDROMORPHONE (TABLETS) [Concomitant]
  11. METHADONE HCL (METHADONE HYDROCHLORIDE) (TABLETS) [Concomitant]
  12. TYLENOL EXTRA STRENGTH (PARACETAMOL) (TABLETS) [Concomitant]
  13. CLARITIN D 24 HOUR (TABLETS) [Concomitant]

REACTIONS (3)
  - Pulmonary embolism [None]
  - Drug dose omission [None]
  - Dyspnoea [None]
